FAERS Safety Report 4998078-X (Version None)
Quarter: 2006Q2

REPORT INFORMATION
  Report Type: 
  Country: None (occurrence: None)
  Receive Date: 20060510
  Receipt Date: 20041228
  Transmission Date: 20061013
  Serious: Yes (Hospitalization, Other)
  Sender: FDA-Public Use
  Company Number: US-MERCK-0412USA03199

PATIENT
  Age: 66 Year
  Sex: Male
  Weight: 123 kg

DRUGS (1)
  1. VIOXX [Suspect]
     Indication: ARTHRITIS
     Route: 048
     Dates: start: 20010601, end: 20040401

REACTIONS (3)
  - ARTHROPATHY [None]
  - HEART RATE IRREGULAR [None]
  - MYOCARDIAL INFARCTION [None]
